FAERS Safety Report 13831599 (Version 1)
Quarter: 2017Q3

REPORT INFORMATION
  Report Type: Spontaneous
  Country: AU (occurrence: AU)
  Receive Date: 20170803
  Receipt Date: 20170803
  Transmission Date: 20171127
  Serious: Yes (Hospitalization, Other)
  Sender: FDA-Public Use
  Company Number: AU-APOTEX-2017AP016145

PATIENT
  Age: 29 Year
  Sex: Male

DRUGS (1)
  1. APO-ARIPIPRAZOLE [Suspect]
     Active Substance: ARIPIPRAZOLE
     Indication: SCHIZOPHRENIA
     Dosage: 20 MG, BID
     Route: 065

REACTIONS (4)
  - Weight increased [Unknown]
  - Diabetic ketoacidosis [Recovering/Resolving]
  - Blood triglycerides increased [Unknown]
  - Lipase increased [Recovering/Resolving]
